FAERS Safety Report 5332537-5 (Version None)
Quarter: 2007Q2

REPORT INFORMATION
  Report Type: 
  Country: None (occurrence: None)
  Receive Date: 20070523
  Receipt Date: 20070518
  Transmission Date: 20071010
  Serious: Yes (Other)
  Sender: FDA-Public Use
  Company Number: US-GENENTECH-240982

PATIENT
  Sex: Male
  Weight: 92.608 kg

DRUGS (1)
  1. AVASTIN [Suspect]
     Indication: COLORECTAL CANCER
     Dosage: 462.5 MG, Q2W, 5 CYCLES
     Route: 042
     Dates: start: 20061213

REACTIONS (1)
  - PULMONARY CAVITATION [None]
